FAERS Safety Report 6581497-8 (Version None)
Quarter: 2010Q1

REPORT INFORMATION
  Report Type: 
  Country: None (occurrence: None)
  Receive Date: 20100215
  Receipt Date: 20100208
  Transmission Date: 20100710
  Serious: Yes (Other)
  Sender: FDA-Public Use
  Company Number: B0632536A

PATIENT
  Age: 3 Month
  Sex: Male

DRUGS (2)
  1. CIMETIDINE [Suspect]
     Indication: GASTROOESOPHAGEAL REFLUX DISEASE
     Dosage: 5MGK PER DAY
     Route: 048
     Dates: start: 20091023, end: 20091024
  2. GAVISCON [Concomitant]
     Indication: GASTROOESOPHAGEAL REFLUX DISEASE
     Route: 065
     Dates: start: 20091001

REACTIONS (3)
  - FAECES PALE [None]
  - LIPASE INCREASED [None]
  - TRANSAMINASES INCREASED [None]
